FAERS Safety Report 9191395 (Version 1)
Quarter: 2013Q1

REPORT INFORMATION
  Report Type: Spontaneous
  Country: US (occurrence: US)
  Receive Date: 20130326
  Receipt Date: 20130326
  Transmission Date: 20140127
  Serious: No
  Sender: FDA-Public Use
  Company Number: US-ASTRAZENECA-2013SE14769

PATIENT
  Age: 41 Year
  Sex: Female
  Weight: 70.8 kg

DRUGS (3)
  1. NEXIUM [Suspect]
     Indication: GASTROOESOPHAGEAL REFLUX DISEASE
     Route: 048
     Dates: start: 2008
  2. VITAMIN D [Concomitant]
     Indication: VITAMIN D DECREASED
     Dosage: 1 WEEK
     Route: 048
     Dates: start: 2012
  3. PERCOCET [Concomitant]
     Indication: FIBROMYALGIA
     Route: 048
     Dates: start: 2011

REACTIONS (6)
  - Discomfort [Unknown]
  - Fibromyalgia [Unknown]
  - Vitamin D decreased [Unknown]
  - Dyspepsia [Unknown]
  - Regurgitation [Unknown]
  - Intentional drug misuse [Unknown]
